FAERS Safety Report 10230825 (Version 1)
Quarter: 2014Q2

REPORT INFORMATION
  Report Type: Spontaneous
  Country: US (occurrence: US)
  Receive Date: 20140611
  Receipt Date: 20140611
  Transmission Date: 20141212
  Serious: Yes (Hospitalization)
  Sender: FDA-Public Use
  Company Number: US-SA-2014SA076063

PATIENT
  Age: 79 Year
  Sex: Female
  Weight: 43.09 kg

DRUGS (17)
  1. PLAVIX [Suspect]
     Indication: PRODUCT USED FOR UNKNOWN INDICATION
     Route: 065
  2. XARELTO [Suspect]
     Indication: ATRIAL FIBRILLATION
     Route: 048
     Dates: start: 2013, end: 2013
  3. XARELTO [Suspect]
     Indication: CEREBROVASCULAR ACCIDENT PROPHYLAXIS
     Route: 048
     Dates: start: 2013, end: 2013
  4. XARELTO [Suspect]
     Indication: ATRIAL FIBRILLATION
     Route: 048
     Dates: start: 20140501
  5. XARELTO [Suspect]
     Indication: CEREBROVASCULAR ACCIDENT PROPHYLAXIS
     Route: 048
     Dates: start: 20140501
  6. DIGOXIN [Concomitant]
  7. CARVEDILOL [Concomitant]
     Dosage: 3.125MG
     Route: 048
  8. LASIX [Concomitant]
     Route: 048
  9. LISINOPRIL [Concomitant]
     Route: 048
  10. SPIRONOLACTONE [Concomitant]
     Indication: CHRONIC OBSTRUCTIVE PULMONARY DISEASE
  11. OXYCODONE [Concomitant]
     Indication: PAIN
     Dosage: DAILY DOSE: SEP
     Route: 048
  12. FOLIC ACID [Concomitant]
     Route: 048
  13. IRON [Concomitant]
     Route: 048
  14. SERTRALINE [Concomitant]
     Route: 048
  15. SYMBICORT [Concomitant]
     Indication: CHRONIC OBSTRUCTIVE PULMONARY DISEASE
     Dosage: FORM: SOLUTION?DAILY DOSE: 160UG, IN 1 AS NECESSARY
     Route: 055
  16. SPIRIVA [Concomitant]
     Indication: CHRONIC OBSTRUCTIVE PULMONARY DISEASE
     Route: 055
  17. SIMVASTATIN [Concomitant]
     Route: 048

REACTIONS (8)
  - Coronary artery occlusion [Unknown]
  - Arteriovenous malformation [Unknown]
  - Vision blurred [Not Recovered/Not Resolved]
  - Asthenia [Not Recovered/Not Resolved]
  - Oesophageal haemorrhage [Recovered/Resolved]
  - Gastrointestinal haemorrhage [Recovered/Resolved]
  - Small intestinal haemorrhage [Unknown]
  - Inappropriate schedule of drug administration [Unknown]
